FAERS Safety Report 24686397 (Version 1)
Quarter: 2024Q4

REPORT INFORMATION
  Report Type: Spontaneous
  Country: US (occurrence: US)
  Receive Date: 20241202
  Receipt Date: 20241202
  Transmission Date: 20250115
  Serious: No
  Sender: ABBVIE
  Company Number: US-ABBVIE-6022821

PATIENT
  Sex: Female

DRUGS (1)
  1. CREON [Suspect]
     Active Substance: PANCRELIPASE AMYLASE\PANCRELIPASE LIPASE\PANCRELIPASE PROTEASE
     Indication: Product used for unknown indication
     Route: 048
     Dates: start: 202408

REACTIONS (6)
  - Blood iron decreased [Unknown]
  - Abdominal distension [Unknown]
  - Pain [Unknown]
  - Gastrointestinal motility disorder [Unknown]
  - Oedema [Unknown]
  - Vitamin B12 decreased [Unknown]

NARRATIVE: CASE EVENT DATE: 20240101
